FAERS Safety Report 21703536 (Version 4)
Quarter: 2024Q2

REPORT INFORMATION
  Report Type: Report from Study
  Country: BE (occurrence: BE)
  Receive Date: 20221209
  Receipt Date: 20240523
  Transmission Date: 20240716
  Serious: Yes (Life-Threatening)
  Sender: FDA-Public Use
  Company Number: BE-ABBVIE-4229641

PATIENT
  Age: 62 Year
  Sex: Male
  Weight: 85 kg

DRUGS (4)
  1. UPADACITINIB [Suspect]
     Active Substance: UPADACITINIB
     Indication: Rheumatoid arthritis
     Route: 048
     Dates: start: 20210915, end: 20221207
  2. LEFLUNOMIDE [Concomitant]
     Active Substance: LEFLUNOMIDE
     Indication: Rheumatoid arthritis
     Route: 048
     Dates: start: 201805
  3. SARS-CoV-2 vaccine [Concomitant]
     Indication: Prophylaxis
     Dosage: ONE IN ONCE, FIRST DOSE
     Route: 030
     Dates: start: 2021, end: 2021
  4. SARS-CoV-2 vaccine [Concomitant]
     Indication: Prophylaxis
     Dosage: ONE IN ONCE, SECOND DOSE
     Route: 030
     Dates: start: 20220225, end: 20220225

REACTIONS (1)
  - Oropharyngeal cancer [Not Recovered/Not Resolved]

NARRATIVE: CASE EVENT DATE: 20221027
